FAERS Safety Report 25482783 (Version 1)
Quarter: 2025Q2

REPORT INFORMATION
  Report Type: Spontaneous
  Country: CH (occurrence: CH)
  Receive Date: 20250626
  Receipt Date: 20250626
  Transmission Date: 20250717
  Serious: Yes (Hospitalization, Other)
  Sender: MYLAN
  Company Number: CH-MYLANLABS-2025M1052929

PATIENT
  Age: 25 Year
  Sex: Male

DRUGS (14)
  1. ARIPIPRAZOLE [Suspect]
     Active Substance: ARIPIPRAZOLE
     Indication: Autism spectrum disorder
  2. ARIPIPRAZOLE [Suspect]
     Active Substance: ARIPIPRAZOLE
     Indication: Behaviour disorder
  3. ESCITALOPRAM [Suspect]
     Active Substance: ESCITALOPRAM OXALATE
     Indication: Autism spectrum disorder
  4. ESCITALOPRAM [Suspect]
     Active Substance: ESCITALOPRAM OXALATE
     Indication: Behaviour disorder
  5. CLOZAPINE [Suspect]
     Active Substance: CLOZAPINE
     Indication: Tardive dyskinesia
     Dosage: 100 MILLIGRAM, QD
  6. TAMSULOSIN [Suspect]
     Active Substance: TAMSULOSIN
     Indication: Urinary retention
     Dosage: 0.4 MILLIGRAM, QD
  7. RISPERIDONE [Suspect]
     Active Substance: RISPERIDONE
     Indication: Autism spectrum disorder
  8. RISPERIDONE [Suspect]
     Active Substance: RISPERIDONE
     Indication: Behaviour disorder
  9. VALPROIC ACID [Suspect]
     Active Substance: VALPROIC ACID
     Indication: Autism spectrum disorder
  10. VALPROIC ACID [Suspect]
     Active Substance: VALPROIC ACID
     Indication: Behaviour disorder
  11. LEVOMEPROMAZINE [Suspect]
     Active Substance: LEVOMEPROMAZINE
     Indication: Autism spectrum disorder
  12. LEVOMEPROMAZINE [Suspect]
     Active Substance: LEVOMEPROMAZINE
     Indication: Behaviour disorder
  13. LORAZEPAM [Suspect]
     Active Substance: LORAZEPAM
     Indication: Autism spectrum disorder
  14. LORAZEPAM [Suspect]
     Active Substance: LORAZEPAM
     Indication: Behaviour disorder

REACTIONS (3)
  - Urinary retention [Recovering/Resolving]
  - Drug ineffective for unapproved indication [Unknown]
  - Off label use [Unknown]
